FAERS Safety Report 16956355 (Version 1)
Quarter: 2019Q4

REPORT INFORMATION
  Report Type: Spontaneous
  Country: CN (occurrence: CN)
  Receive Date: 20191024
  Receipt Date: 20191024
  Transmission Date: 20200122
  Serious: Yes (Life-Threatening, Hospitalization)
  Sender: FDA-Public Use
  Company Number: CN-ROCHE-2438440

PATIENT
  Age: 53 Year
  Sex: Male
  Weight: 45 kg

DRUGS (2)
  1. RALTITREXED [Suspect]
     Active Substance: RALTITREXED
     Indication: GASTRIC CANCER
     Route: 041
     Dates: start: 20190226, end: 20190226
  2. BEVACIZUMAB. [Suspect]
     Active Substance: BEVACIZUMAB
     Indication: GASTRIC CANCER
     Route: 041
     Dates: start: 20190226, end: 20190226

REACTIONS (8)
  - Body temperature increased [Recovering/Resolving]
  - Bone marrow failure [Recovering/Resolving]
  - Intentional product use issue [Unknown]
  - Haemorrhagic disorder [Recovering/Resolving]
  - Pruritus [Recovering/Resolving]
  - Off label use [Unknown]
  - Asthenia [Recovering/Resolving]
  - Decreased appetite [Recovering/Resolving]

NARRATIVE: CASE EVENT DATE: 20190307
